FAERS Safety Report 6840402-7 (Version None)
Quarter: 2010Q3

REPORT INFORMATION
  Report Type: 
  Country: None (occurrence: None)
  Receive Date: 20100714
  Receipt Date: 20100706
  Transmission Date: 20110219
  Serious: Yes (Other)
  Sender: FDA-Public Use
  Company Number: US-PFIZER INC-2009278524

PATIENT
  Sex: Female

DRUGS (3)
  1. SUTENT [Suspect]
     Indication: METASTATIC RENAL CELL CARCINOMA
     Dosage: 50 MG, 1X/DAY, FOR 28DAYS EVERY 42 DAYS
     Route: 048
     Dates: start: 20090807
  2. SUTENT [Suspect]
     Dosage: 37.5 MG, 1X/DAY, WITHOUT BREAKS
     Dates: start: 20100122, end: 20100210
  3. SUTENT [Suspect]
     Dosage: 25 MG, 1X/DAY, FOR 14DAYS Q 21DAYS
     Route: 048
     Dates: start: 20100226

REACTIONS (1)
  - NEUROPATHY PERIPHERAL [None]
